FAERS Safety Report 10425130 (Version 2)
Quarter: 2015Q2

REPORT INFORMATION
  Report Type: Spontaneous
  Country: JP (occurrence: JP)
  Receive Date: 20140902
  Receipt Date: 20150414
  Transmission Date: 20150821
  Serious: Yes (Death, Other)
  Sender: FDA-Public Use
  Company Number: PHHY2010JP096688

PATIENT
  Age: 77 Year
  Sex: Male

DRUGS (2)
  1. GLIVEC [Suspect]
     Active Substance: IMATINIB MESYLATE
     Dosage: 100 MG, QD (DAILY)
     Route: 065
     Dates: start: 20091201
  2. GLIVEC [Suspect]
     Active Substance: IMATINIB MESYLATE
     Indication: CHRONIC MYELOID LEUKAEMIA
     Dosage: 200 MG, QD (DAILY)
     Route: 065
     Dates: start: 20090601

REACTIONS (3)
  - Death [Fatal]
  - Second primary malignancy [Unknown]
  - Gastric cancer [Unknown]
